FAERS Safety Report 4935188-7 (Version None)
Quarter: 2006Q1

REPORT INFORMATION
  Report Type: 
  Country: None (occurrence: None)
  Receive Date: 20060302
  Receipt Date: 20060214
  Transmission Date: 20060701
  Serious: Yes (Life-Threatening, Hospitalization)
  Sender: FDA-Public Use
  Company Number: US_0402101137

PATIENT
  Sex: Female
  Weight: 3.9 kg

DRUGS (3)
  1. ILETIN [Suspect]
     Dosage: TRANSPLACENTAL
     Route: 064
  2. ILETIN [Suspect]
     Dosage: TRANSPLACENTAL
     Route: 064
  3. PRENATAL VITAMINS [Concomitant]

REACTIONS (3)
  - DRUG EXPOSURE DURING PREGNANCY [None]
  - JAUNDICE NEONATAL [None]
  - PREMATURE LABOUR [None]
